FAERS Safety Report 4734027-7 (Version None)
Quarter: 2005Q3

REPORT INFORMATION
  Report Type: 
  Country: None (occurrence: None)
  Receive Date: 20050721
  Receipt Date: 20050510
  Transmission Date: 20060218
  Serious: No
  Sender: FDA-Public Use
  Company Number: 2005SP000669

PATIENT
  Age: 58 Year
  Sex: Female
  Weight: 109.7705 kg

DRUGS (1)
  1. LUNESTA [Suspect]
     Dosage: 2 MG; HS; ORAL
     Route: 048
     Dates: start: 20050418, end: 20050423

REACTIONS (2)
  - DRUG INEFFECTIVE [None]
  - INSOMNIA [None]
